FAERS Safety Report 8519985 (Version 6)
Quarter: 2012Q4

REPORT INFORMATION
  Report Type: 
  Country: GB (occurrence: GB)
  Receive Date: 20120418
  Receipt Date: 20121019
  Transmission Date: 20130627
  Serious: Yes (Life-Threatening, Hospitalization, Other)
  Sender: FDA-Public Use
  Company Number: PHFR2012GB002288

PATIENT
  Age: 24 None
  Sex: Male

DRUGS (12)
  1. CLOZARIL [Suspect]
     Indication: SCHIZOPHRENIA
     Route: 048
     Dates: start: 20110121
  2. CLOZARIL [Suspect]
     Dosage: 300 mg, daily
     Route: 048
     Dates: start: 201104
  3. CLOZARIL [Suspect]
     Dosage: 100 mg, QD
     Route: 048
  4. CLOZARIL [Suspect]
     Dosage: 400 mg, UNK
  5. CLOZARIL [Suspect]
     Dosage: 250 mg
     Route: 048
     Dates: end: 20120921
  6. VENLAFAXINE [Concomitant]
     Dosage: 187.5 mg, daily
     Route: 048
     Dates: start: 201104
  7. VENLAFAXINE [Concomitant]
     Dosage: 375 mg
     Route: 048
  8. DIAZEPAM [Concomitant]
     Dosage: 5 mg, daily
     Route: 048
     Dates: start: 201104
  9. DIAZEPAM [Concomitant]
     Dosage: 2.5 mg, daily
     Route: 048
     Dates: start: 201203
  10. DIAZEPAM [Concomitant]
     Dosage: 7.5 mg
     Dates: start: 20110101
  11. AMISULPRIDE [Concomitant]
     Dosage: 400 mg
     Dates: start: 20110101
  12. AMISULPRIDE [Concomitant]
     Dosage: 400 mg, daily
     Route: 048
     Dates: start: 201203

REACTIONS (10)
  - Appendicitis perforated [Recovered/Resolved]
  - Vein disorder [Recovering/Resolving]
  - Thrombosis [Recovering/Resolving]
  - Tachycardia [Recovered/Resolved]
  - Heart rate increased [Unknown]
  - Pallor [Unknown]
  - International normalised ratio abnormal [Not Recovered/Not Resolved]
  - Nausea [Unknown]
  - Dizziness [Unknown]
  - Platelet count increased [Unknown]
